FAERS Safety Report 11861648 (Version 1)
Quarter: 2015Q4

REPORT INFORMATION
  Report Type: Spontaneous
  Country: FR (occurrence: FR)
  Receive Date: 20151222
  Receipt Date: 20151222
  Transmission Date: 20160305
  Serious: Yes (Hospitalization)
  Sender: FDA-Public Use
  Company Number: FR-PFIZER INC-2015434778

PATIENT
  Age: 43 Year
  Sex: Male

DRUGS (11)
  1. TOPALGIC LP [Interacting]
     Active Substance: TRAMADOL
     Dosage: 200 MG, 4X/DAY
     Route: 048
     Dates: start: 20151024, end: 20151030
  2. TOPALGIC LP [Interacting]
     Active Substance: TRAMADOL
     Dosage: 200 MG, 4X/DAY
     Route: 048
     Dates: start: 20151012, end: 20151022
  3. ACTISKENAN [Concomitant]
     Active Substance: MORPHINE SULFATE
     Dosage: 20 MG, EVERY 4 HRS
     Dates: start: 20151023, end: 20151024
  4. FRAGMINE [Concomitant]
     Active Substance: DALTEPARIN SODIUM
     Dosage: 5000 IU, 1X/DAY
     Route: 058
     Dates: start: 20151012, end: 20151026
  5. STILNOX [Concomitant]
     Active Substance: ZOLPIDEM TARTRATE
     Dosage: 10 MG, 1X/DAY
     Route: 048
     Dates: end: 20151031
  6. LEXOMIL ROCHE [Concomitant]
     Active Substance: BROMAZEPAM
     Dosage: 0.5 DF, 3X/DAY
     Route: 048
  7. LYRICA [Concomitant]
     Active Substance: PREGABALIN
     Dosage: 100 MG, 2X/DAY
     Route: 048
     Dates: end: 20151031
  8. DOLIPRANE [Concomitant]
     Active Substance: ACETAMINOPHEN
     Dosage: 1000 MG, 4X/DAY
     Route: 048
  9. TOPALGIC [Concomitant]
     Active Substance: TRAMADOL
     Dosage: 50 MG, 4X/DAY AS NEEDED
     Dates: start: 20151012, end: 20151022
  10. ZYVOXID [Suspect]
     Active Substance: LINEZOLID
     Dosage: 600 MG, 2X/DAY
     Route: 048
     Dates: start: 20151012, end: 20151031
  11. THIOCOLCHICOSIDE [Concomitant]
     Active Substance: THIOCOLCHICOSIDE
     Dosage: 4 MG, 1X/DAY
     Route: 048

REACTIONS (3)
  - Pain [Unknown]
  - Serotonin syndrome [Recovered/Resolved]
  - Drug interaction [Recovered/Resolved]

NARRATIVE: CASE EVENT DATE: 20151012
